FAERS Safety Report 6401746-6 (Version None)
Quarter: 2009Q4

REPORT INFORMATION
  Report Type: 
  Country: None (occurrence: None)
  Receive Date: 20091015
  Receipt Date: 20091006
  Transmission Date: 20100525
  Serious: Yes (Other)
  Sender: FDA-Public Use
  Company Number: JP-ASTRAZENECA-2009SE14135

PATIENT
  Age: 90 Year
  Sex: Female

DRUGS (11)
  1. SEROQUEL [Suspect]
     Route: 048
  2. CEFDINIR [Suspect]
     Route: 048
  3. OMEPRAL [Concomitant]
  4. ASPIRIN [Concomitant]
  5. TANATRIL [Concomitant]
  6. BUP-4 [Concomitant]
  7. ITOROL [Concomitant]
  8. SELBEX [Concomitant]
  9. LOXONIN [Concomitant]
  10. MUCOSTA [Concomitant]
  11. DASEN [Concomitant]

REACTIONS (1)
  - RESPIRATORY ARREST [None]
